FAERS Safety Report 7516231-8 (Version None)
Quarter: 2011Q2

REPORT INFORMATION
  Report Type: 
  Country: None (occurrence: None)
  Receive Date: 20110601
  Receipt Date: 20110527
  Transmission Date: 20111010
  Serious: Yes (Hospitalization)
  Sender: FDA-Public Use
  Company Number: TH-PFIZER INC-2011114616

PATIENT
  Age: 17 Year
  Sex: Male
  Weight: 87 kg

DRUGS (2)
  1. EDRONAX [Suspect]
     Indication: DEPRESSION
     Dosage: 2 MG, 2X/DAY
     Route: 048
     Dates: start: 20110507
  2. XANAX [Suspect]
     Indication: INSOMNIA
     Dosage: 0.5 MG, 1X/DAY
     Route: 048
     Dates: start: 20110507

REACTIONS (4)
  - LOSS OF CONSCIOUSNESS [None]
  - FALL [None]
  - DRY THROAT [None]
  - DRY MOUTH [None]
